FAERS Safety Report 8110997-4 (Version None)
Quarter: 2012Q1

REPORT INFORMATION
  Report Type: 
  Country: None (occurrence: None)
  Receive Date: 20120131
  Receipt Date: 20120131
  Transmission Date: 20120608
  Serious: Yes (Other)
  Sender: FDA-Public Use
  Company Number: None

PATIENT
  Age: 18 Year
  Sex: Male
  Weight: 131.5431 kg

DRUGS (3)
  1. RISPERIDONE [Suspect]
     Indication: ASPERGER'S DISORDER
     Dosage: 1 MG BID PO 10 DAYS - 14 DAYS
     Route: 048
  2. RISPERIDONE [Suspect]
     Indication: OBSESSIVE-COMPULSIVE DISORDER
     Dosage: 1 MG BID PO 10 DAYS - 14 DAYS
     Route: 048
  3. RISPERIDONE [Suspect]
     Indication: ANXIETY
     Dosage: 1 MG BID PO 10 DAYS - 14 DAYS
     Route: 048

REACTIONS (2)
  - HALLUCINATION, AUDITORY [None]
  - PRODUCT SUBSTITUTION ISSUE [None]
